FAERS Safety Report 6780753-8 (Version None)
Quarter: 2010Q2

REPORT INFORMATION
  Report Type: 
  Country: None (occurrence: None)
  Receive Date: 20100621
  Receipt Date: 20100615
  Transmission Date: 20101027
  Serious: Yes (Other)
  Sender: FDA-Public Use
  Company Number: ZA-JNJCH-2010014235

PATIENT
  Age: 32 Year
  Sex: Male

DRUGS (1)
  1. NICORETTE [Suspect]
     Indication: SMOKING CESSATION THERAPY
     Dosage: TEXT:15 MG AND THEN 10 MG
     Route: 062

REACTIONS (5)
  - ANXIETY [None]
  - COUGH [None]
  - HEADACHE [None]
  - PALPITATIONS [None]
  - THROAT IRRITATION [None]
